FAERS Safety Report 10010856 (Version 2)
Quarter: 2014Q1

REPORT INFORMATION
  Report Type: Spontaneous
  Country: US (occurrence: US)
  Receive Date: 20140314
  Receipt Date: 20140314
  Transmission Date: 20141002
  Serious: No
  Sender: FDA-Public Use
  Company Number: US-DRREDDYS-USA/USA/13/0029121

PATIENT
  Age: 48 Year
  Sex: Male
  Weight: 77.18 kg

DRUGS (1)
  1. CETIRIZINE 10 MG [Suspect]
     Indication: HYPERSENSITIVITY
     Dosage: 2 TABLETS AT 4 AM AND 2 TABLETS AT 8 AM
     Route: 048
     Dates: start: 20130417

REACTIONS (2)
  - Fatigue [Unknown]
  - Extra dose administered [Unknown]
